FAERS Safety Report 18438414 (Version 4)
Quarter: 2021Q1

REPORT INFORMATION
  Report Type: Report from Study
  Country: FR (occurrence: FR)
  Receive Date: 20201029
  Receipt Date: 20210217
  Transmission Date: 20210419
  Serious: No
  Sender: FDA-Public Use
  Company Number: FR-ROCHE-2701877

PATIENT
  Age: 56 Year
  Sex: Male

DRUGS (23)
  1. ORAMORPH [Concomitant]
     Active Substance: MORPHINE SULFATE
     Route: 048
     Dates: start: 20200113, end: 20200114
  2. MOVICOL [Concomitant]
     Active Substance: POLYETHYLENE GLYCOL 3350\POTASSIUM CHLORIDE\SODIUM BICARBONATE\SODIUM CHLORIDE
     Route: 048
     Dates: start: 20200103, end: 20200217
  3. DOLIPRANE [Concomitant]
     Active Substance: ACETAMINOPHEN
     Indication: SYSTEMIC IMMUNE ACTIVATION
     Route: 042
     Dates: start: 20200107, end: 20200107
  4. DIFFU K [Concomitant]
     Active Substance: POTASSIUM CHLORIDE
     Route: 048
     Dates: start: 20200108, end: 20200114
  5. IBUPROFENE [Concomitant]
     Active Substance: IBUPROFEN
     Route: 048
     Dates: start: 20191122, end: 2019
  6. DAFALGAN [Concomitant]
     Active Substance: ACETAMINOPHEN
     Indication: HEADACHE
     Route: 048
     Dates: start: 20201104
  7. IBUPROFENE [Concomitant]
     Active Substance: IBUPROFEN
     Dates: start: 20210118, end: 20210120
  8. CANDESARTAN. [Concomitant]
     Active Substance: CANDESARTAN
     Indication: HYPERTENSION
     Route: 048
     Dates: start: 20200218
  9. PETROLATUM. [Concomitant]
     Active Substance: PETROLATUM
     Indication: DRY SKIN
     Route: 061
     Dates: start: 20191213, end: 20191213
  10. ATEZOLIZUMAB. [Suspect]
     Active Substance: ATEZOLIZUMAB
     Indication: MALIGNANT MELANOMA
     Dosage: DATE OF LAST DOSE OF ATEZOLIZUMAB PRIOR TO SAE ONSET: 15/MAY/2020
     Route: 042
     Dates: start: 20191226
  11. ACTISKENAN [Concomitant]
     Active Substance: MORPHINE SULFATE
     Route: 048
     Dates: start: 20191126
  12. PRIMPERAN [Concomitant]
     Active Substance: METOCLOPRAMIDE HYDROCHLORIDE
     Dates: start: 20200107, end: 20200114
  13. OXYNORM [Concomitant]
     Active Substance: OXYCODONE HYDROCHLORIDE
     Dates: start: 20200107, end: 20200113
  14. DAFALGAN [Concomitant]
     Active Substance: ACETAMINOPHEN
     Route: 048
     Dates: start: 20201111
  15. MORINGA [Concomitant]
     Indication: NUTRITIONAL SUPPLEMENTATION
     Dates: start: 20200831
  16. LOXEN (FRANCE) [Concomitant]
     Active Substance: NICARDIPINE HYDROCHLORIDE
     Route: 048
     Dates: start: 20200108, end: 20200109
  17. VEMURAFENIB. [Suspect]
     Active Substance: VEMURAFENIB
     Indication: MALIGNANT MELANOMA
     Dosage: DATE OF LAST DOSE OF VEMURAFENIB PRIOR TO AE ONSET: 06/JAN/2020, 480 MG?DATE OF LAST DOSE OF VEMURAF
     Route: 048
     Dates: start: 20191130
  18. SKENAN [Concomitant]
     Active Substance: MORPHINE SULFATE
     Route: 048
     Dates: start: 20191204, end: 20200117
  19. SKENAN [Concomitant]
     Active Substance: MORPHINE SULFATE
     Route: 048
     Dates: start: 20191126, end: 20191203
  20. PARACETAMOL [Concomitant]
     Active Substance: ACETAMINOPHEN
     Route: 048
     Dates: start: 20200107, end: 20200114
  21. COBIMETINIB. [Suspect]
     Active Substance: COBIMETINIB
     Indication: MALIGNANT MELANOMA
     Dosage: DATE OF LAST DOSE OF COBIMETINIB PRIOR TO AE ONSET: 06/JAN/2010 WAS 40 MG??DATE OF LAST DOSE OF COBI
     Route: 048
     Dates: start: 20191130
  22. FORLAX [Concomitant]
     Active Substance: POLYETHYLENE GLYCOL 4000
     Indication: CONSTIPATION
     Dates: start: 20191213
  23. CICALFATE [Concomitant]
     Indication: PHOTOSENSITIVITY REACTION
     Route: 061
     Dates: start: 20200701, end: 20200724

REACTIONS (1)
  - Blood creatine phosphokinase increased [Not Recovered/Not Resolved]

NARRATIVE: CASE EVENT DATE: 20191213
